FAERS Safety Report 8247280-2 (Version None)
Quarter: 2012Q1

REPORT INFORMATION
  Report Type: 
  Country: None (occurrence: None)
  Receive Date: 20120330
  Receipt Date: 20120328
  Transmission Date: 20120608
  Serious: Yes (Other)
  Sender: FDA-Public Use
  Company Number: US-PFIZER INC-2012080567

PATIENT
  Age: 85 Year
  Sex: Female

DRUGS (1)
  1. XANAX [Suspect]
     Dosage: 1MG, UNK

REACTIONS (1)
  - MYOCARDIAL INFARCTION [None]
